FAERS Safety Report 16209301 (Version 1)
Quarter: 2019Q2

REPORT INFORMATION
  Report Type: Spontaneous
  Country: CH (occurrence: CH)
  Receive Date: 20190417
  Receipt Date: 20190417
  Transmission Date: 20190711
  Serious: Yes (Hospitalization)
  Sender: FDA-Public Use
  Company Number: CH-BAYER-2019-074601

PATIENT
  Age: 73 Year
  Sex: Male
  Weight: 76.5 kg

DRUGS (10)
  1. SEEBRI [Concomitant]
     Active Substance: GLYCOPYRROLATE
     Dosage: 1 DF, OM
     Route: 055
  2. BILOL [Concomitant]
     Active Substance: BISOPROLOL
     Dosage: 2.5 MG, UNK
     Route: 048
  3. PRAVASTATIN MEPHA [Concomitant]
     Active Substance: PRAVASTATIN
     Dosage: 20 MG, UNK
     Route: 048
  4. IRFEN [Suspect]
     Active Substance: IBUPROFEN
     Indication: BACK PAIN
     Dosage: 400 MG, UNK
     Route: 048
  5. COVERAM [Suspect]
     Active Substance: AMLODIPINE\PERINDOPRIL
     Dosage: 1 DF, OM
     Route: 048
  6. ZYLORIC [Concomitant]
     Active Substance: ALLOPURINOL
     Dosage: 100 MG, UNK
     Route: 048
  7. ASPIRIN CARDIO 300 MG [Suspect]
     Active Substance: ASPIRIN
     Dates: end: 20180822
  8. PANTOZOL [Suspect]
     Active Substance: PANTOPRAZOLE SODIUM
     Dosage: 40 MG, UNK
     Route: 048
  9. LASIX [Suspect]
     Active Substance: FUROSEMIDE
     Indication: OEDEMA
     Dosage: 160 MG, UNK
     Route: 048
  10. DUODART [Concomitant]
     Active Substance: DUTASTERIDE\TAMSULOSIN
     Dosage: 1 DF, QD
     Route: 048

REACTIONS (2)
  - Acute kidney injury [Recovered/Resolved]
  - Hyponatraemia [Recovered/Resolved]
